FAERS Safety Report 5570362-0 (Version None)
Quarter: 2007Q4

REPORT INFORMATION
  Report Type: 
  Country: None (occurrence: None)
  Receive Date: 20071217
  Receipt Date: 20071217
  Transmission Date: 20080405
  Serious: Yes (Hospitalization)
  Sender: FDA-Public Use
  Company Number: None

PATIENT
  Age: 73 Year
  Sex: Male
  Weight: 83.9154 kg

DRUGS (6)
  1. BEVACIZUMAB [Suspect]
     Indication: BLADDER TRANSITIONAL CELL CARCINOMA
     Dosage: 1263 MG Q21DAYS IV
     Route: 042
     Dates: start: 20071011, end: 20071108
  2. CISPLATIN [Suspect]
     Indication: BLADDER TRANSITIONAL CELL CARCINOMA
     Dosage: 140 MG Q21DAYS IV
     Route: 042
     Dates: start: 20071011, end: 20071108
  3. GEMCITABINE [Concomitant]
  4. EMEND [Concomitant]
  5. DEXAMETHASONE TAB [Concomitant]
  6. COMPAZINE [Concomitant]

REACTIONS (3)
  - BRADYCARDIA [None]
  - NEUTROPHIL COUNT DECREASED [None]
  - SYNCOPE [None]
